FAERS Safety Report 9278249 (Version 1)
Quarter: 2013Q2

REPORT INFORMATION
  Report Type: Spontaneous
  Country: US (occurrence: None)
  Receive Date: 20130506
  Receipt Date: 20130506
  Transmission Date: 20140414
  Serious: Yes (Hospitalization)
  Sender: FDA-Public Use
  Company Number: None

PATIENT
  Age: 83 Year
  Sex: Male
  Weight: 96.2 kg

DRUGS (1)
  1. ALIMTA [Suspect]

REACTIONS (4)
  - Deep vein thrombosis [None]
  - Pulmonary embolism [None]
  - Cellulitis [None]
  - Impaired healing [None]
